FAERS Safety Report 12471701 (Version 1)
Quarter: 2016Q2

REPORT INFORMATION
  Report Type: Spontaneous
  Country: US (occurrence: None)
  Receive Date: 20160615
  Receipt Date: 20160615
  Transmission Date: 20160815
  Serious: Yes (Hospitalization)
  Sender: FDA-Public Use
  Company Number: None

PATIENT
  Age: 30 Year
  Sex: Female
  Weight: 76.3 kg

DRUGS (8)
  1. FE [Concomitant]
     Active Substance: IRON
  2. ALDACTONE [Concomitant]
     Active Substance: SPIRONOLACTONE
  3. PROTONIX [Concomitant]
     Active Substance: PANTOPRAZOLE SODIUM
  4. CHRONULAC [Concomitant]
     Active Substance: LACTULOSE
  5. PROVENTIL [Concomitant]
     Active Substance: ALBUTEROL
  6. PROPANOLOL [Concomitant]
     Active Substance: PROPRANOLOL HYDROCHLORIDE
  7. FENTANYL. [Suspect]
     Active Substance: FENTANYL
     Indication: SEDATIVE THERAPY
     Route: 042
  8. LASIX [Concomitant]
     Active Substance: FUROSEMIDE

REACTIONS (2)
  - Sedation [None]
  - Loss of consciousness [None]

NARRATIVE: CASE EVENT DATE: 20151111
